FAERS Safety Report 9098068 (Version 2)
Quarter: 2013Q1

REPORT INFORMATION
  Report Type: Report from Study
  Country: CA (occurrence: CA)
  Receive Date: 20130212
  Receipt Date: 20130213
  Transmission Date: 20140127
  Serious: Yes (Other)
  Sender: FDA-Public Use
  Company Number: CA-ROCHE-1189500

PATIENT
  Sex: Female
  Weight: 54.4 kg

DRUGS (11)
  1. RITUXAN [Suspect]
     Indication: PEMPHIGUS
     Route: 042
     Dates: start: 20110502
  2. ELTROXIN [Concomitant]
  3. FUCIDIN [Concomitant]
  4. BENADRYL [Concomitant]
  5. PARIET [Concomitant]
  6. ACTONEL [Concomitant]
  7. PREDNISONE [Concomitant]
     Route: 065
  8. MAGIC MOUTH RINSE (KAOPECTATE, VISCOUS LIDOCAINE, BENADRYL) [Concomitant]
  9. DIPHENHYDRAMINE HCL [Concomitant]
     Indication: PREMEDICATION
     Route: 048
     Dates: start: 20120502
  10. ACETAMINOPHEN [Concomitant]
     Indication: PREMEDICATION
     Route: 048
     Dates: start: 20120502
  11. METHYLPREDNISOLONE [Concomitant]
     Indication: PREMEDICATION
     Route: 042
     Dates: start: 20120502

REACTIONS (3)
  - Hepatic lesion [Unknown]
  - Rash [Not Recovered/Not Resolved]
  - Sinusitis [Recovered/Resolved]
